FAERS Safety Report 19124116 (Version 3)
Quarter: 2021Q2

REPORT INFORMATION
  Report Type: Report from Study
  Country: CN (occurrence: CN)
  Receive Date: 20210413
  Receipt Date: 20210423
  Transmission Date: 20210717
  Serious: Yes (Life-Threatening, Hospitalization)
  Sender: FDA-Public Use
  Company Number: CN-ROCHE-2806584

PATIENT
  Age: 38 Year
  Sex: Male
  Weight: 60 kg

DRUGS (2)
  1. EMICIZUMAB. [Suspect]
     Active Substance: EMICIZUMAB
     Indication: FACTOR VIII DEFICIENCY
     Dosage: FIRST MAINTENANCE DOSE DATE: 27/MAR/2019 (6 MG/KG)?START DATE OF MOST RECENT DOSE (2.4 MG FOR EVERY
     Route: 058
     Dates: start: 20190227
  2. FACTOR VIII [Concomitant]
     Active Substance: ANTIHEMOPHILIC FACTOR HUMAN
     Indication: HAEMOPHILIA

REACTIONS (1)
  - Mallory-Weiss syndrome [Recovered/Resolved]

NARRATIVE: CASE EVENT DATE: 20210331
